FAERS Safety Report 14546001 (Version 4)
Quarter: 2023Q1

REPORT INFORMATION
  Report Type: Other
  Country: US (occurrence: None)
  Receive Date: 20180219
  Receipt Date: 20230112
  Transmission Date: 20230418
  Serious: Yes (Other)
  Sender: FDA-Public Use
  Company Number: US-ROCHE-2071281

PATIENT

DRUGS (5)
  1. RITUXIMAB [Suspect]
     Active Substance: RITUXIMAB
     Indication: Diffuse large B-cell lymphoma
     Dosage: OVER 3-8 HOURS, ON DAY 3
     Route: 041
  2. CARFILZOMIB [Suspect]
     Active Substance: CARFILZOMIB
     Indication: Diffuse large B-cell lymphoma
     Dosage: ON DAYS 1, 2, 8, 9
     Route: 042
  3. IFOSFAMIDE [Suspect]
     Active Substance: IFOSFAMIDE
     Indication: Diffuse large B-cell lymphoma
     Dosage: OVER 24 HOURS ON DAY 5
     Route: 042
  4. CARBOPLATIN [Suspect]
     Active Substance: CARBOPLATIN
     Indication: Diffuse large B-cell lymphoma
     Dosage: OVER 1 HOUR ON DAY 5
     Route: 042
  5. ETOPOSIDE [Suspect]
     Active Substance: ETOPOSIDE
     Indication: Diffuse large B-cell lymphoma
     Dosage: OVER 1 HOUR ON DAYS 4-6
     Route: 042

REACTIONS (35)
  - Hypocalcaemia [Unknown]
  - Hypokalaemia [Unknown]
  - Thrombocytopenia [Unknown]
  - Anaemia [Unknown]
  - Lymphopenia [Unknown]
  - Febrile neutropenia [Unknown]
  - Device related infection [Unknown]
  - Abscess [Unknown]
  - Dehydration [Unknown]
  - Hyperglycaemia [Unknown]
  - Hypophosphataemia [Unknown]
  - Dyspnoea [Unknown]
  - Pulmonary embolism [Unknown]
  - Headache [Unknown]
  - Disseminated intravascular coagulation [Unknown]
  - Cardiac failure congestive [Unknown]
  - Pain [Unknown]
  - Lymph node abscess [Unknown]
  - Pneumonia [Unknown]
  - Sepsis [Unknown]
  - Soft tissue infection [Unknown]
  - Wound infection [Unknown]
  - Neutrophil count decreased [Unknown]
  - White blood cell count decreased [Unknown]
  - Hyponatraemia [Unknown]
  - Confusional state [Unknown]
  - Back pain [Unknown]
  - Psychotic disorder [Unknown]
  - Hypoxia [Unknown]
  - Deep vein thrombosis [Unknown]
  - Hypertension [Unknown]
  - Hypotension [Unknown]
  - Abdominal pain [Unknown]
  - Obstruction gastric [Unknown]
  - Rectal haemorrhage [Unknown]
